FAERS Safety Report 10306268 (Version 1)
Quarter: 2014Q3

REPORT INFORMATION
  Report Type: Spontaneous
  Country: FR (occurrence: FR)
  Receive Date: 20140715
  Receipt Date: 20140715
  Transmission Date: 20150326
  Serious: Yes (Other)
  Sender: FDA-Public Use
  Company Number: FR-BRISTOL-MYERS SQUIBB COMPANY-21198395

PATIENT

DRUGS (1)
  1. COUMADINE [Suspect]
     Active Substance: WARFARIN SODIUM

REACTIONS (1)
  - Medication error [Unknown]
